FAERS Safety Report 21084718 (Version 1)
Quarter: 2022Q3

REPORT INFORMATION
  Report Type: Spontaneous
  Country: US (occurrence: US)
  Receive Date: 20220714
  Receipt Date: 20220714
  Transmission Date: 20221026
  Serious: No
  Sender: FDA-Public Use
  Company Number: US-PFIZER INC-PV202200022535

PATIENT

DRUGS (6)
  1. EUCRISA [Suspect]
     Active Substance: CRISABOROLE
     Indication: Dermatitis atopic
     Dosage: UNK
  2. EUCRISA [Suspect]
     Active Substance: CRISABOROLE
     Indication: Dry skin
  3. EUCRISA [Suspect]
     Active Substance: CRISABOROLE
     Indication: Pruritus
  4. EUCRISA [Suspect]
     Active Substance: CRISABOROLE
     Indication: Erythema
  5. EUCRISA [Suspect]
     Active Substance: CRISABOROLE
     Indication: Skin exfoliation
  6. EUCRISA [Suspect]
     Active Substance: CRISABOROLE
     Indication: Rash

REACTIONS (1)
  - Drug ineffective [Unknown]
